FAERS Safety Report 26186066 (Version 1)
Quarter: 2025Q4

REPORT INFORMATION
  Report Type: Spontaneous
  Country: MY (occurrence: MY)
  Receive Date: 20251222
  Receipt Date: 20251222
  Transmission Date: 20260118
  Serious: Yes (Other)
  Sender: ASTELLAS
  Company Number: MY-SANDOZ-SDZ2025MY092991

PATIENT
  Age: 27 Year
  Sex: Male

DRUGS (3)
  1. MYCAMINE [Suspect]
     Active Substance: MICAFUNGIN SODIUM
     Indication: Crohn^s disease
     Dosage: 100 MG, QD
     Route: 042
  2. MYCAMINE [Suspect]
     Active Substance: MICAFUNGIN SODIUM
     Indication: Anal fistula
     Dosage: DAY 5
     Route: 042
  3. MYCAMINE [Suspect]
     Active Substance: MICAFUNGIN SODIUM
     Dosage: DAY 10
     Route: 042

REACTIONS (7)
  - Oxygen saturation decreased [Unknown]
  - Somnolence [Unknown]
  - Stoma site discharge [Unknown]
  - Metabolic acidosis [Unknown]
  - Pyrexia [Unknown]
  - Vomiting [Unknown]
  - Hypotension [Unknown]
